FAERS Safety Report 5131185-X (Version None)
Quarter: 2006Q4

REPORT INFORMATION
  Report Type: 
  Country: None (occurrence: None)
  Receive Date: 20061017
  Receipt Date: 20061017
  Transmission Date: 20070319
  Serious: Yes (Other)
  Sender: FDA-Public Use
  Company Number: None

PATIENT
  Sex: Female
  Weight: 59.8748 kg

DRUGS (1)
  1. FOSAMAX PLUS D [Suspect]
     Indication: OSTEOPENIA
     Dosage: 1 TABLET  70 MG   ONCE A WEEK   PO
     Route: 048
     Dates: start: 20051001, end: 20061001

REACTIONS (6)
  - ARTHRALGIA [None]
  - FIBULA FRACTURE [None]
  - IMPAIRED HEALING [None]
  - INFLUENZA LIKE ILLNESS [None]
  - STRESS FRACTURE [None]
  - TIBIA FRACTURE [None]
